FAERS Safety Report 14281455 (Version 1)
Quarter: 2017Q4

REPORT INFORMATION
  Report Type: Spontaneous
  Country: US (occurrence: None)
  Receive Date: 20171213
  Receipt Date: 20171213
  Transmission Date: 20180321
  Serious: Yes (Hospitalization)
  Sender: FDA-Public Use
  Company Number: None

PATIENT
  Age: 63 Year
  Sex: Male

DRUGS (15)
  1. PLAQUENIL [Concomitant]
     Active Substance: HYDROXYCHLOROQUINE SULFATE
  2. DEXAMETHASON [Concomitant]
     Active Substance: DEXAMETHASONE
  3. CRESTOR [Concomitant]
     Active Substance: ROSUVASTATIN CALCIUM
  4. HYDROXYCHLOR [Concomitant]
     Active Substance: HYDROXYCHLOROQUINE
  5. PREDNISONE. [Concomitant]
     Active Substance: PREDNISONE
  6. FOLIC ACID. [Concomitant]
     Active Substance: FOLIC ACID
  7. VITAMIN D3 [Concomitant]
     Active Substance: CHOLECALCIFEROL
  8. AUGMENTIN [Concomitant]
     Active Substance: AMOXICILLIN\CLAVULANATE POTASSIUM
  9. XELJANZ XR [Suspect]
     Active Substance: TOFACITINIB CITRATE
     Indication: RHEUMATOID ARTHRITIS
     Route: 048
     Dates: start: 20170524
  10. HYDRO/APAP [Concomitant]
     Active Substance: ACETAMINOPHEN\HYDROCODONE
  11. ANUCORT HC [Concomitant]
  12. HYOMAX-SR [Concomitant]
     Active Substance: HYOSCYAMINE SULFATE
  13. AMOXICILLIN. [Concomitant]
     Active Substance: AMOXICILLIN
  14. FISH OIL [Concomitant]
     Active Substance: FISH OIL
  15. ENCONAZOLE [Concomitant]

REACTIONS (2)
  - Pancreatitis [None]
  - Drug dose omission [None]
